FAERS Safety Report 9803190 (Version 1)
Quarter: 2014Q1

REPORT INFORMATION
  Report Type: Spontaneous
  Country: US (occurrence: None)
  Receive Date: 20140107
  Receipt Date: 20140107
  Transmission Date: 20141002
  Serious: Yes (Other)
  Sender: FDA-Public Use
  Company Number: None

PATIENT
  Age: 69 Year
  Sex: Female
  Weight: 60.78 kg

DRUGS (1)
  1. RESTASIS [Suspect]
     Indication: DRY EYE
     Dosage: 1 DROP TWICE DAILY INTO THE EYE
     Dates: start: 20130930, end: 20131123

REACTIONS (4)
  - Vision blurred [None]
  - Foreign body sensation in eyes [None]
  - Discomfort [None]
  - Ocular hyperaemia [None]
